FAERS Safety Report 8519658-0 (Version None)
Quarter: 2012Q3

REPORT INFORMATION
  Report Type: 
  Country: None (occurrence: None)
  Receive Date: 20120719
  Receipt Date: 20120712
  Transmission Date: 20120928
  Serious: No
  Sender: FDA-Public Use
  Company Number: US-009507513-1207USA003855

PATIENT

DRUGS (3)
  1. PEGASYS [Suspect]
  2. VICTRELIS [Suspect]
     Indication: HEPATITIS C
     Dosage: 800 MG, TID
     Route: 048
  3. RIBASPHERE [Suspect]

REACTIONS (1)
  - HAEMOGLOBIN DECREASED [None]
